FAERS Safety Report 4553335-6 (Version None)
Quarter: 2005Q1

REPORT INFORMATION
  Report Type: 
  Country: None (occurrence: None)
  Receive Date: 20050112
  Receipt Date: 20041229
  Transmission Date: 20050727
  Serious: Yes (Death)
  Sender: FDA-Public Use
  Company Number: 2004AP02882

PATIENT
  Age: 71 Year
  Sex: Male

DRUGS (1)
  1. ACCOLATE [Suspect]
     Dosage: 20 MG DAILY PO
     Route: 048
     Dates: start: 20011226

REACTIONS (6)
  - HEPATIC FUNCTION ABNORMAL [None]
  - LUNG NEOPLASM MALIGNANT [None]
  - METASTASES TO BONE [None]
  - METASTASES TO BONE MARROW [None]
  - PEPTIC ULCER [None]
  - RHEUMATOID ARTHRITIS [None]
